FAERS Safety Report 6146153-9 (Version None)
Quarter: 2009Q2

REPORT INFORMATION
  Report Type: 
  Country: None (occurrence: None)
  Receive Date: 20090403
  Receipt Date: 20090323
  Transmission Date: 20091009
  Serious: Yes (Hospitalization)
  Sender: FDA-Public Use
  Company Number: TAP2009Q00293

PATIENT
  Age: 50 Year
  Sex: Female
  Weight: 46.82 kg

DRUGS (8)
  1. PREVACID [Suspect]
     Indication: GASTROOESOPHAGEAL REFLUX DISEASE
     Dosage: SEE IMAGE
     Route: 048
     Dates: end: 19900101
  2. PREVACID [Suspect]
     Indication: GASTROOESOPHAGEAL REFLUX DISEASE
     Dosage: SEE IMAGE
     Route: 048
     Dates: end: 20090201
  3. PREVACID [Suspect]
     Indication: GASTROOESOPHAGEAL REFLUX DISEASE
     Dosage: SEE IMAGE
     Route: 048
     Dates: start: 20090323
  4. ZADITOR EYE DROPS (KETOTIFEN) [Concomitant]
  5. NEXIUM [Concomitant]
  6. MYLANTA (MYLANTA) [Concomitant]
  7. ROLAIDS [Concomitant]
  8. ALOE JUCE (ALL OTHER THERAPEUTIC PRODUCTS) [Concomitant]

REACTIONS (6)
  - ABDOMINAL PAIN [None]
  - BARRETT'S OESOPHAGUS [None]
  - BLOOD POTASSIUM DECREASED [None]
  - CYSTITIS [None]
  - FATIGUE [None]
  - PANCREATITIS CHRONIC [None]
